FAERS Safety Report 5802014-3 (Version None)
Quarter: 2008Q3

REPORT INFORMATION
  Report Type: 
  Country: None (occurrence: None)
  Receive Date: 20080702
  Receipt Date: 20080618
  Transmission Date: 20090109
  Serious: Yes (Death, Hospitalization)
  Sender: FDA-Public Use
  Company Number: 2008AL007633

PATIENT
  Age: 89 Year
  Sex: Female

DRUGS (4)
  1. IBUPROFEN [Suspect]
     Dosage: 1200 MG; QD
     Dates: start: 20030101
  2. POTASSIUM CHLORIDE [Concomitant]
  3. PANTOPRAZOLE SODIUM [Concomitant]
  4. MORPHINE [Concomitant]

REACTIONS (10)
  - ATRIAL FIBRILLATION [None]
  - CARDIAC FAILURE [None]
  - CONSTIPATION [None]
  - DEHYDRATION [None]
  - DUODENAL ULCER [None]
  - FALL [None]
  - GASTRIC ULCER [None]
  - MALAISE [None]
  - NAUSEA [None]
  - URINARY TRACT INFECTION [None]
